FAERS Safety Report 9563860 (Version 1)
Quarter: 2013Q3

REPORT INFORMATION
  Report Type: Spontaneous
  Country: US (occurrence: None)
  Receive Date: 20130926
  Receipt Date: 20130926
  Transmission Date: 20140515
  Serious: Yes (Other)
  Sender: FDA-Public Use
  Company Number: None

PATIENT
  Age: 52 Year
  Sex: Male
  Weight: 77.11 kg

DRUGS (1)
  1. LEVOQUIN [Suspect]
     Dosage: 2 PER DAY, TWICE DAILY, TAKEN BY MOUTH
     Route: 048

REACTIONS (8)
  - Pain in extremity [None]
  - Pain in extremity [None]
  - Pain in extremity [None]
  - Paraesthesia [None]
  - Burning sensation [None]
  - Eye disorder [None]
  - Muscle rupture [None]
  - Muscular weakness [None]
